FAERS Safety Report 6990805-5 (Version None)
Quarter: 2010Q3

REPORT INFORMATION
  Report Type: 
  Country: None (occurrence: None)
  Receive Date: 20100916
  Receipt Date: 20100819
  Transmission Date: 20110219
  Serious: Yes (Other)
  Sender: FDA-Public Use
  Company Number: US-PFIZER INC-2010066394

PATIENT
  Sex: Female
  Weight: 111.1 kg

DRUGS (10)
  1. LYRICA [Suspect]
     Indication: FIBROMYALGIA
     Dosage: 75 MG, DAILY
     Route: 048
     Dates: start: 20080101
  2. LORATADINE [Concomitant]
     Indication: URTICARIA
     Dosage: 10 MG, 2X/DAY
  3. ACETYLSALICYLIC ACID [Concomitant]
     Dosage: UNK
  4. LISINOPRIL [Concomitant]
     Dosage: 20 MG, DAILY
  5. GLYBURIDE [Concomitant]
     Dosage: 5 MG, 2X/DAY
  6. METFORMIN [Concomitant]
     Dosage: 1000 MG, 2X/DAY
  7. RANITIDINE [Concomitant]
     Dosage: 150 MG, 2X/DAY
  8. VERAPAMIL [Concomitant]
     Dosage: 80 MG, 1X/DAY
  9. NOVOLOG [Concomitant]
     Dosage: UNK
  10. INSULIN DETEMIR [Concomitant]
     Dosage: 50 UNITS, UNK

REACTIONS (7)
  - ABDOMINAL PAIN UPPER [None]
  - DEPRESSION [None]
  - MANIA [None]
  - OBSESSIVE-COMPULSIVE DISORDER [None]
  - PARANOIA [None]
  - WEIGHT INCREASED [None]
  - WHEEZING [None]
